FAERS Safety Report 14318315 (Version 8)
Quarter: 2018Q4

REPORT INFORMATION
  Report Type: Spontaneous
  Country: CA (occurrence: CA)
  Receive Date: 20171222
  Receipt Date: 20181123
  Transmission Date: 20190204
  Serious: Yes (Hospitalization)
  Sender: FDA-Public Use
  Company Number: CA-CELLTRION INC.-2017CA016111

PATIENT

DRUGS (10)
  1. INFLECTRA [Suspect]
     Active Substance: INFLIXIMAB-DYYB
     Dosage: UNK (EVERY 6 WEEKS)
     Route: 065
  2. PREDNISONE. [Concomitant]
     Active Substance: PREDNISONE
     Dosage: 50 MG, DAILY
     Dates: start: 20171030
  3. ZOPICLONE [Concomitant]
     Active Substance: ZOPICLONE
     Dosage: 12.5 MG, UNK, AT BEDTIME
  4. INFLECTRA [Suspect]
     Active Substance: INFLIXIMAB-DYYB
     Dosage: 500 MG, CYCLIC (EVERY 6 WEEKS)
     Route: 042
     Dates: start: 20171214
  5. INFLECTRA [Suspect]
     Active Substance: INFLIXIMAB-DYYB
     Indication: COLITIS ULCERATIVE
     Dosage: 454 MG, CYCLIC (EVERY 2,6 AND 8 WEEKS)
     Route: 042
     Dates: start: 20171030
  6. INFLECTRA [Suspect]
     Active Substance: INFLIXIMAB-DYYB
     Indication: RHEUMATOID ARTHRITIS
     Dosage: 500 MG, CYCLIC EVERY 2,6 AND 8 WEEKS
     Route: 042
  7. METHOTREXATE. [Concomitant]
     Active Substance: METHOTREXATE
     Dosage: 7.5 MG, 1/WEEK
     Route: 048
     Dates: start: 20171217
  8. PREDNISONE. [Concomitant]
     Active Substance: PREDNISONE
     Dosage: 20 UNK
     Route: 048
  9. INFLECTRA [Suspect]
     Active Substance: INFLIXIMAB-DYYB
     Dosage: 500 MG, CYCLIC (EVERY 2,6 AND 8 WEEKS)
     Route: 042
  10. INFLECTRA [Suspect]
     Active Substance: INFLIXIMAB-DYYB
     Dosage: 500 MG, CYCLIC (EVERY 6 WEEKS)
     Route: 042
     Dates: start: 20180129, end: 20180129

REACTIONS (7)
  - Condition aggravated [Unknown]
  - Drug level above therapeutic [Unknown]
  - Weight increased [Unknown]
  - Drug effect incomplete [Unknown]
  - Rash erythematous [Unknown]
  - Product use issue [Unknown]
  - Rectal haemorrhage [Unknown]

NARRATIVE: CASE EVENT DATE: 201711
